FAERS Safety Report 8022858-X (Version None)
Quarter: 2012Q1

REPORT INFORMATION
  Report Type: 
  Country: None (occurrence: None)
  Receive Date: 20120104
  Receipt Date: 20111221
  Transmission Date: 20120608
  Serious: Yes (Other)
  Sender: FDA-Public Use
  Company Number: JP-ROCHE-1025884

PATIENT
  Age: 55 Year
  Sex: Male

DRUGS (3)
  1. VALGANCICLOVIR [Suspect]
     Indication: CYTOMEGALOVIRUS INFECTION
     Route: 048
     Dates: start: 20111213
  2. FAMOTIDINE [Suspect]
     Indication: PRODUCT USED FOR UNKNOWN INDICATION
     Route: 065
  3. ROCEPHIN [Concomitant]
     Route: 051

REACTIONS (2)
  - DELIRIUM [None]
  - RENAL IMPAIRMENT [None]
